FAERS Safety Report 19305949 (Version 1)
Quarter: 2021Q2

REPORT INFORMATION
  Report Type: Spontaneous
  Country: US (occurrence: US)
  Receive Date: 20210526
  Receipt Date: 20210526
  Transmission Date: 20210717
  Serious: No
  Sender: FDA-Public Use
  Company Number: US-HIKMA PHARMACEUTICALS USA INC.-US-H14001-21-00592

PATIENT
  Age: 71 Year
  Sex: Male
  Weight: 78.46 kg

DRUGS (11)
  1. VITAMIN B12 [Concomitant]
     Active Substance: CYANOCOBALAMIN
     Indication: PRODUCT USED FOR UNKNOWN INDICATION
     Dosage: UNKNOWN
     Route: 065
     Dates: start: 2020
  2. IRON [Concomitant]
     Active Substance: IRON
     Indication: PRODUCT USED FOR UNKNOWN INDICATION
     Dosage: UNKNOWN
     Route: 065
  3. VITAMIN B COMPLEX [Concomitant]
     Active Substance: CYANOCOBALAMIN\DEXPANTHENOL\NIACINAMIDE\PYRIDOXINE HYDROCHLORIDE\RIBOFLAVIN 5^-PHOSPHATE SODIUM\THIAMINE HYDROCHLORIDE\VITAMIN B COMPLEX
     Indication: PRODUCT USED FOR UNKNOWN INDICATION
     Dosage: UNKNOWN
     Route: 065
     Dates: start: 2020
  4. AMITRIPTYLINE [Concomitant]
     Active Substance: AMITRIPTYLINE
     Indication: PRODUCT USED FOR UNKNOWN INDICATION
     Dosage: UNKNOWN
     Route: 065
  5. GABAPENTIN. [Concomitant]
     Active Substance: GABAPENTIN
     Indication: PRODUCT USED FOR UNKNOWN INDICATION
     Dosage: UNKNOWN
     Route: 065
  6. MULTIVITAMINS, PLAIN [Concomitant]
     Active Substance: VITAMINS
     Indication: PRODUCT USED FOR UNKNOWN INDICATION
     Dosage: UNKNOWN
     Route: 065
  7. TESTOSTERONE. [Suspect]
     Active Substance: TESTOSTERONE
     Indication: BLOOD TESTOSTERONE DECREASED
     Route: 030
     Dates: start: 20210110
  8. DHEA [Concomitant]
     Active Substance: PRASTERONE
     Indication: PRODUCT USED FOR UNKNOWN INDICATION
     Dosage: UNKNOWN
     Route: 065
     Dates: start: 2020
  9. CLOBETASOL [Concomitant]
     Active Substance: CLOBETASOL
     Indication: PSORIASIS
     Dosage: UNKNOWN
     Route: 065
  10. PENICILLIN [Concomitant]
     Active Substance: PENICILLIN
     Indication: PRODUCT USED FOR UNKNOWN INDICATION
     Dosage: UNKNOWN
     Route: 065
     Dates: start: 20210120
  11. ASPIRIN 81 [Concomitant]
     Active Substance: ASPIRIN
     Indication: PRODUCT USED FOR UNKNOWN INDICATION
     Dosage: UNKNOWN
     Route: 065

REACTIONS (4)
  - Injection site nodule [Not Recovered/Not Resolved]
  - Product administered at inappropriate site [Unknown]
  - Injection site pruritus [Recovered/Resolved]
  - Inappropriate schedule of product administration [Unknown]
